FAERS Safety Report 7324211-0 (Version None)
Quarter: 2011Q1

REPORT INFORMATION
  Report Type: 
  Country: None (occurrence: None)
  Receive Date: 20110202
  Receipt Date: 20101105
  Transmission Date: 20110831
  Serious: No
  Sender: FDA-Public Use
  Company Number: 2010-14583

PATIENT
  Age: 61 Year
  Sex: Male
  Weight: 58 kg

DRUGS (2)
  1. AUGMENTIN [Suspect]
     Indication: INFECTION
     Dosage: ONE TABLET, BID, ORAL
     Route: 048
     Dates: start: 20101029, end: 20101105
  2. RAPAFLO [Suspect]
     Indication: URINE FLOW DECREASED
     Dosage: 8 MG, DAILY, ORAL
     Route: 048
     Dates: start: 20100628

REACTIONS (1)
  - URINE FLOW DECREASED [None]
